FAERS Safety Report 21004419 (Version 1)
Quarter: 2022Q2

REPORT INFORMATION
  Report Type: Spontaneous
  Country: US (occurrence: US)
  Receive Date: 20220624
  Receipt Date: 20220624
  Transmission Date: 20220721
  Serious: Yes (Disabling, Other)
  Sender: FDA-Public Use
  Company Number: US-BAYER-2022A085896

PATIENT
  Age: 35 Year
  Sex: Female

DRUGS (1)
  1. MIRENA [Suspect]
     Active Substance: LEVONORGESTREL
     Indication: Contraception
     Dosage: 20?G/DAY
     Route: 015
     Dates: start: 201707, end: 202101

REACTIONS (2)
  - Infertility female [Recovered/Resolved with Sequelae]
  - Device dislocation [Recovered/Resolved with Sequelae]

NARRATIVE: CASE EVENT DATE: 20210101
